FAERS Safety Report 5099923-2 (Version None)
Quarter: 2006Q3

REPORT INFORMATION
  Report Type: 
  Country: None (occurrence: None)
  Receive Date: 20060906
  Receipt Date: 20060822
  Transmission Date: 20061208
  Serious: Yes (Death, Hospitalization, Other)
  Sender: FDA-Public Use
  Company Number: CIP06001710

PATIENT
  Age: 37 Year
  Sex: Female

DRUGS (8)
  1. MACRODANTIN [Suspect]
     Indication: CYSTITIS
     Dosage: 100 MG DAILY, ORAL
     Route: 048
     Dates: end: 20060214
  2. PROPYLTHIOURACIL [Concomitant]
  3. MORPHINE [Concomitant]
  4. MAXOLON [Concomitant]
  5. OXYCONTIN [Concomitant]
  6. FLUOXETINE [Concomitant]
  7. DIAZEPAM [Concomitant]
  8. ATENOLOL [Concomitant]

REACTIONS (5)
  - ALANINE AMINOTRANSFERASE INCREASED [None]
  - ASPARTATE AMINOTRANSFERASE INCREASED [None]
  - DRUG TOXICITY [None]
  - HEPATIC ENCEPHALOPATHY [None]
  - HYPERTHYROIDISM [None]
